FAERS Safety Report 10836074 (Version 1)
Quarter: 2015Q1

REPORT INFORMATION
  Report Type: Spontaneous
  Country: US (occurrence: US)
  Receive Date: 20150219
  Receipt Date: 20150219
  Transmission Date: 20150721
  Serious: Yes (Death)
  Sender: FDA-Public Use
  Company Number: US-ABBVIE-15P-163-1349705-00

PATIENT
  Age: 50 Year
  Sex: Male

DRUGS (1)
  1. ANDROGEL [Suspect]
     Active Substance: TESTOSTERONE
     Indication: BLOOD TESTOSTERONE DECREASED
     Dosage: APPLIED TO SKIN OF SHOULDERS AND UPPER ARMS
     Route: 065
     Dates: start: 201201, end: 20121030

REACTIONS (1)
  - Myocardial infarction [Fatal]
